FAERS Safety Report 23226296 (Version 2)
Quarter: 2023Q4

REPORT INFORMATION
  Report Type: Report from Study
  Country: US (occurrence: US)
  Receive Date: 20231124
  Receipt Date: 20231128
  Transmission Date: 20240110
  Serious: Yes (Other)
  Sender: FDA-Public Use
  Company Number: US-ABBVIE-5510491

PATIENT
  Sex: Male

DRUGS (5)
  1. RITONAVIR [Suspect]
     Active Substance: RITONAVIR
     Indication: Maternal exposure timing unspecified
     Route: 064
  2. EFAVIRENZ\EMTRICITABINE\TENOFOVIR [Suspect]
     Active Substance: EFAVIRENZ\EMTRICITABINE\TENOFOVIR
     Indication: Maternal exposure timing unspecified
     Dosage: TOTAL DAILY DOSE 1
     Route: 064
  3. ATAZANAVIR [Suspect]
     Active Substance: ATAZANAVIR
     Indication: Maternal exposure timing unspecified
     Dosage: TOTAL DAILY DOSE 400
     Route: 064
  4. ATAZANAVIR [Suspect]
     Active Substance: ATAZANAVIR
     Indication: Maternal exposure timing unspecified
     Dosage: TOTAL DAILY DOSE 300
     Route: 064
  5. ZIDOVUDINE [Suspect]
     Active Substance: ZIDOVUDINE
     Indication: Maternal exposure timing unspecified
     Dosage: TOTAL DAILY DOSE 2
     Route: 064

REACTIONS (2)
  - Premature baby [Unknown]
  - Foetal exposure during pregnancy [Unknown]
